FAERS Safety Report 19203811 (Version 2)
Quarter: 2021Q2

REPORT INFORMATION
  Report Type: Spontaneous
  Country: NL (occurrence: NL)
  Receive Date: 20210430
  Receipt Date: 20210508
  Transmission Date: 20210717
  Serious: Yes (Death, Life-Threatening, Hospitalization, Congenital Anomaly)
  Sender: FDA-Public Use
  Company Number: NL-TEVA-2021-NL-1905782

PATIENT

DRUGS (2)
  1. BUPROPION TABLET MGA 300MG / BRAND NAME NOT SPECIFIED [Suspect]
     Active Substance: BUPROPION HYDROCHLORIDE
     Indication: PRODUCT USED FOR UNKNOWN INDICATION
     Dosage: 300 MG (MILLIGRAM) , THERAPY END DATE : ASKED BUT UNKNOWN
     Dates: start: 2020
  2. LITHIUMCARBONAAT TABLET MGA 400MG / CAMCOLIT TABLET 400MG [Suspect]
     Active Substance: LITHIUM CARBONATE
     Indication: PRODUCT USED FOR UNKNOWN INDICATION
     Dosage: 1200 MG , THERAPY END DATE : ASKED BUT UNKNOWN
     Dates: start: 2020

REACTIONS (4)
  - Brain malformation [Fatal]
  - Intestinal perforation [Fatal]
  - Intestinal obstruction [Fatal]
  - Maternal exposure during pregnancy [Unknown]

NARRATIVE: CASE EVENT DATE: 20210101
